FAERS Safety Report 17398238 (Version 2)
Quarter: 2020Q2

REPORT INFORMATION
  Report Type: Spontaneous
  Country: DK (occurrence: DK)
  Receive Date: 20200210
  Receipt Date: 20200514
  Transmission Date: 20200713
  Serious: Yes (Life-Threatening, Hospitalization, Disabling)
  Sender: FDA-Public Use
  Company Number: DK-PFIZER INC-2020057536

PATIENT
  Age: 64 Year
  Sex: Female

DRUGS (4)
  1. MORFIN DAK [Suspect]
     Active Substance: MORPHINE HYDROCHLORIDE
     Indication: PAIN
     Dosage: 1 DF, AS NEEDED (1 TABLET AS NEEDED, MAX 6 TIMES DAILY)
     Route: 048
     Dates: start: 20180227, end: 20180322
  2. TOILAX [Concomitant]
     Active Substance: BISACODYL
     Indication: CONSTIPATION
     Dosage: 10 MG, 1X/DAY
     Route: 048
     Dates: start: 20180227
  3. CONTALGIN [Suspect]
     Active Substance: MORPHINE SULFATE
     Indication: PAIN
     Dosage: 20 MG, 1X/DAY
     Route: 048
     Dates: start: 20180227, end: 20180322
  4. KODEIN [Concomitant]
     Active Substance: CODEINE PHOSPHATE
     Indication: PAIN
     Dosage: 75 MG, 1X/DAY
     Route: 048
     Dates: start: 20140107, end: 20180522

REACTIONS (13)
  - Constipation [Recovered/Resolved]
  - Anxiety [Not Recovered/Not Resolved]
  - Depression [Not Recovered/Not Resolved]
  - Dyspnoea [Recovered/Resolved]
  - Intestinal resection [Recovered/Resolved]
  - Abdominal pain [Recovered/Resolved]
  - Skin discolouration [Recovered/Resolved]
  - Colostomy [Recovered/Resolved]
  - Scar [Not Recovered/Not Resolved]
  - Confusional state [Recovered/Resolved]
  - Intestinal perforation [Recovered/Resolved]
  - Heart rate increased [Recovered/Resolved]
  - Agitation [Not Recovered/Not Resolved]

NARRATIVE: CASE EVENT DATE: 201803
